FAERS Safety Report 10414016 (Version 1)
Quarter: 2014Q3

REPORT INFORMATION
  Report Type: Spontaneous
  Country: GB (occurrence: None)
  Receive Date: 20140825
  Receipt Date: 20140825
  Transmission Date: 20150326
  Serious: Yes (Other)
  Sender: FDA-Public Use
  Company Number: AUR-APL-2014-08699

PATIENT
  Age: 32 Year
  Sex: Male
  Weight: 69.8 kg

DRUGS (1)
  1. CIPROFLOXACIN 500 MG (CIPROFLOXACIN) UNKNOWN, 500MG [Suspect]
     Active Substance: CIPROFLOXACIN
     Indication: PROSTATITIS
     Route: 048
     Dates: start: 20120201, end: 20120225

REACTIONS (3)
  - Muscle atrophy [None]
  - Neuropathy peripheral [None]
  - Tendonitis [None]

NARRATIVE: CASE EVENT DATE: 20120220
